FAERS Safety Report 9307143 (Version 2)
Quarter: 2013Q2

REPORT INFORMATION
  Report Type: Spontaneous
  Country: GB (occurrence: GB)
  Receive Date: 20130524
  Receipt Date: 20130530
  Transmission Date: 20140414
  Serious: Yes (Hospitalization)
  Sender: FDA-Public Use
  Company Number: GB-ROCHE-1227583

PATIENT
  Age: 61 Year
  Sex: Female

DRUGS (23)
  1. MABTHERA [Suspect]
     Indication: RHEUMATOID ARTHRITIS
     Route: 042
     Dates: start: 20130118
  2. ZOLEDRONATE [Suspect]
     Indication: OSTEOPOROSIS
     Route: 042
     Dates: start: 20130426, end: 20130426
  3. ATORVASTATIN [Concomitant]
  4. CALCICHEW D3 [Concomitant]
  5. CANDESARTAN [Concomitant]
  6. CLOPIDOGREL [Concomitant]
  7. CYCLIZINE [Concomitant]
  8. DOSULEPIN [Concomitant]
  9. FUROSEMIDE [Concomitant]
  10. GAVISCON (ALGINIC ACID) [Concomitant]
  11. LANTUS [Concomitant]
  12. LEVOTHYROXINE [Concomitant]
  13. MORPHINE SULFATE [Concomitant]
  14. NOVORAPID [Concomitant]
  15. PANTOPRAZOLE [Concomitant]
  16. PREDNISOLONE [Concomitant]
  17. PREGABALIN [Concomitant]
  18. PROCHLORPERAZINE [Concomitant]
  19. SALBUTAMOL [Concomitant]
  20. SERETIDE [Concomitant]
  21. TRAMADOL [Concomitant]
  22. URSODEOXYCHOLIC ACID [Concomitant]
  23. ZOLPIDEM [Concomitant]

REACTIONS (4)
  - Headache [Unknown]
  - Neutropenia [Recovered/Resolved]
  - Neutropenic sepsis [Recovered/Resolved]
  - Pyrexia [Unknown]
